FAERS Safety Report 5396478-X (Version None)
Quarter: 2007Q3

REPORT INFORMATION
  Report Type: 
  Country: None (occurrence: None)
  Receive Date: 20070725
  Receipt Date: 20061105
  Transmission Date: 20080115
  Serious: No
  Sender: FDA-Public Use
  Company Number: US-BAUSCH-2006BL006311

PATIENT
  Age: 27 Year
  Sex: Female

DRUGS (1)
  1. CROMOLYN SODIUM NASAL SOLUTION [Suspect]
     Indication: HYPERSENSITIVITY
     Route: 045
     Dates: start: 20061105, end: 20061105

REACTIONS (2)
  - HEADACHE [None]
  - NAUSEA [None]
